FAERS Safety Report 22097900 (Version 2)
Quarter: 2023Q2

REPORT INFORMATION
  Report Type: Report from Study
  Country: US (occurrence: US)
  Receive Date: 20230315
  Receipt Date: 20230413
  Transmission Date: 20230722
  Serious: Yes (Hospitalization)
  Sender: FDA-Public Use
  Company Number: US-INSMED, INC.-2023-00188-US

PATIENT
  Sex: Female

DRUGS (1)
  1. ARIKAYCE [Suspect]
     Active Substance: AMIKACIN
     Indication: Mycobacterial infection
     Dosage: 590 MILLIGRAM, QD
     Route: 055
     Dates: start: 2021, end: 2023

REACTIONS (6)
  - Hospitalisation [Unknown]
  - Feeding tube user [Not Recovered/Not Resolved]
  - Gastric disorder [Unknown]
  - Palliative care [Unknown]
  - Product dose omission issue [Unknown]
  - Therapy interrupted [Unknown]
